FAERS Safety Report 17511019 (Version 1)
Quarter: 2020Q1

REPORT INFORMATION
  Report Type: Spontaneous
  Country: GB (occurrence: GB)
  Receive Date: 20200306
  Receipt Date: 20200306
  Transmission Date: 20200409
  Serious: Yes (Other)
  Sender: FDA-Public Use
  Company Number: GB-JNJFOC-20200301401

PATIENT
  Sex: Male

DRUGS (1)
  1. RIVAROXABAN [Suspect]
     Active Substance: RIVAROXABAN
     Indication: THROMBOSIS
     Dosage: 20 MG, QD
     Route: 048

REACTIONS (14)
  - Carpal tunnel syndrome [Unknown]
  - Pain [Unknown]
  - Lip dry [Unknown]
  - Mobility decreased [Unknown]
  - Haemoptysis [Unknown]
  - Pruritus genital [Unknown]
  - Renal pain [Unknown]
  - Oedema peripheral [Unknown]
  - Myalgia [Unknown]
  - Dry mouth [Not Recovered/Not Resolved]
  - Haemorrhage [Unknown]
  - Lip swelling [Unknown]
  - Periarthritis [Unknown]
  - Insomnia [Unknown]
